FAERS Safety Report 20230849 (Version 2)
Quarter: 2022Q1

REPORT INFORMATION
  Report Type: Spontaneous
  Country: US (occurrence: None)
  Receive Date: 20211227
  Receipt Date: 20220217
  Transmission Date: 20220423
  Serious: No
  Sender: FDA-Public Use
  Company Number: 2021A872532

PATIENT
  Sex: Female
  Weight: 79.4 kg

DRUGS (3)
  1. FASENRA [Suspect]
     Active Substance: BENRALIZUMAB
     Indication: Asthma
     Route: 058
  2. MUCINEX [Concomitant]
     Active Substance: GUAIFENESIN
     Dosage: EXTENDED RELEASE
  3. CLARITIN [Concomitant]
     Active Substance: LORATADINE

REACTIONS (3)
  - Nasopharyngitis [Unknown]
  - Cough [Unknown]
  - Illness [Unknown]
